FAERS Safety Report 20158587 (Version 1)
Quarter: 2021Q4

REPORT INFORMATION
  Report Type: Spontaneous
  Country: CN (occurrence: CN)
  Receive Date: 20211207
  Receipt Date: 20211207
  Transmission Date: 20220303
  Serious: Yes (Other)
  Sender: FDA-Public Use
  Company Number: CN-ABBVIE-21K-035-4185973-00

PATIENT
  Age: 49 Year
  Sex: Female

DRUGS (1)
  1. VALPROATE SODIUM [Suspect]
     Active Substance: VALPROATE SODIUM
     Indication: Epilepsy
     Dosage: 333.3/145 MG
     Route: 048

REACTIONS (6)
  - Seizure [Unknown]
  - Suspected counterfeit product [Unknown]
  - Bruxism [Unknown]
  - Altered state of consciousness [Unknown]
  - Paralysis [Unknown]
  - Unresponsive to stimuli [Unknown]
